FAERS Safety Report 7946365-5 (Version None)
Quarter: 2011Q4

REPORT INFORMATION
  Report Type: 
  Country: None (occurrence: None)
  Receive Date: 20111129
  Receipt Date: 20111121
  Transmission Date: 20120403
  Serious: Yes (Hospitalization, Other)
  Sender: FDA-Public Use
  Company Number: FR-MERCK-1111FRA00070

PATIENT
  Age: 69 Year
  Sex: Female

DRUGS (2)
  1. JANUMET [Suspect]
     Indication: TYPE 2 DIABETES MELLITUS
     Route: 048
     Dates: start: 20100324, end: 20111102
  2. PERINDOPRIL ARGININE [Concomitant]
     Indication: HYPERTENSION
     Route: 065
     Dates: start: 20100710

REACTIONS (1)
  - NEPHROLITHIASIS [None]
